FAERS Safety Report 12446780 (Version 1)
Quarter: 2016Q2

REPORT INFORMATION
  Report Type: Spontaneous
  Country: US (occurrence: US)
  Receive Date: 20160608
  Receipt Date: 20160608
  Transmission Date: 20160815
  Serious: No
  Sender: FDA-Public Use
  Company Number: US-BAYER-2016-105737

PATIENT

DRUGS (1)
  1. MIRALAX [Suspect]
     Active Substance: POLYETHYLENE GLYCOL 3350
     Dosage: 1 DF, UNK

REACTIONS (17)
  - Nervousness [None]
  - Nausea [None]
  - Feeling cold [None]
  - Eating disorder [None]
  - Diarrhoea [None]
  - Adverse drug reaction [None]
  - Pain [None]
  - Insomnia [None]
  - Tremor [Recovering/Resolving]
  - Faeces soft [None]
  - Bowel movement irregularity [None]
  - Heart rate increased [None]
  - Panic reaction [None]
  - Flatulence [None]
  - Abdominal distension [None]
  - Dizziness [None]
  - Muscle spasms [None]
